FAERS Safety Report 7772946-8 (Version None)
Quarter: 2011Q3

REPORT INFORMATION
  Report Type: 
  Country: None (occurrence: None)
  Receive Date: 20110922
  Receipt Date: 20110527
  Transmission Date: 20111222
  Serious: Yes (Other)
  Sender: FDA-Public Use
  Company Number: US-ASTRAZENECA-2011SE33017

PATIENT
  Age: 52 Year
  Sex: Female

DRUGS (2)
  1. SEROQUEL [Suspect]
     Indication: BIPOLAR DISORDER
     Route: 048
     Dates: start: 20030101
  2. SEROQUEL [Suspect]
     Route: 048

REACTIONS (3)
  - THERAPEUTIC RESPONSE UNEXPECTED [None]
  - DRUG DOSE OMISSION [None]
  - CATARACT [None]
